FAERS Safety Report 7262454-5 (Version None)
Quarter: 2011Q1

REPORT INFORMATION
  Report Type: 
  Country: None (occurrence: None)
  Receive Date: 20110119
  Receipt Date: 20110107
  Transmission Date: 20110831
  Serious: Yes (Hospitalization, Other)
  Sender: FDA-Public Use
  Company Number: JPI-P-013427

PATIENT
  Age: 42 Year
  Sex: Male
  Weight: 113.3993 kg

DRUGS (9)
  1. RANITIDINE HYDROCHLORIDE [Concomitant]
  2. XYREM [Suspect]
     Indication: NARCOLEPSY
     Dosage: 4.5 GM (2.25 GM, 2 IN 1 D), ORAL; 7.5 GM (3.75 GM, 2 IN 1 D), ORAL
     Route: 048
     Dates: start: 20100927, end: 20101001
  3. GABAPENTIN [Concomitant]
  4. LEVOTHYROXINE SODIUM [Concomitant]
  5. PANCRELIPASE [Concomitant]
  6. FENTANYL OXYCODONE AND ACETAMINOPHN [Concomitant]
  7. ALPRAZOLAM [Concomitant]
  8. CITALOPRAM HYDROBROMIDE [Concomitant]
  9. ACETAMINOPHEN/ASPIRIN/CAFFEINE/SALICYLATE [Concomitant]

REACTIONS (9)
  - POOR QUALITY SLEEP [None]
  - CONCUSSION [None]
  - PANCREATITIS CHRONIC [None]
  - FALL [None]
  - CONDITION AGGRAVATED [None]
  - PYREXIA [None]
  - WHITE BLOOD CELL COUNT INCREASED [None]
  - HEAD INJURY [None]
  - LARYNGITIS [None]
